FAERS Safety Report 18948725 (Version 1)
Quarter: 2021Q1

REPORT INFORMATION
  Report Type: Spontaneous
  Country: US (occurrence: US)
  Receive Date: 20210226
  Receipt Date: 20210226
  Transmission Date: 20210420
  Serious: No
  Sender: FDA-Public Use
  Company Number: US-ROCHE-2527537

PATIENT
  Sex: Female
  Weight: 69.46 kg

DRUGS (1)
  1. XOLAIR [Suspect]
     Active Substance: OMALIZUMAB
     Indication: MECHANICAL URTICARIA
     Dosage: ONGOING:YES
     Route: 058
     Dates: start: 20190312

REACTIONS (4)
  - Intentional product use issue [Unknown]
  - Ear infection [Recovering/Resolving]
  - Off label use [Unknown]
  - Throat tightness [Unknown]
